FAERS Safety Report 15020585 (Version 3)
Quarter: 2021Q2

REPORT INFORMATION
  Report Type: Spontaneous
  Country: US (occurrence: US)
  Receive Date: 20180618
  Receipt Date: 20210603
  Transmission Date: 20210716
  Serious: No
  Sender: FDA-Public Use
  Company Number: US-MALLINCKRODT-T201703450

PATIENT
  Age: 44 Year
  Sex: Male

DRUGS (1)
  1. HYDROCODONE/ACETAMINOPHEN [Suspect]
     Active Substance: ACETAMINOPHEN\HYDROCODONE
     Indication: PAIN
     Dosage: 10/325MG
     Route: 065

REACTIONS (6)
  - Ill-defined disorder [Unknown]
  - Tension [Unknown]
  - Product quality issue [Unknown]
  - Headache [Unknown]
  - Tremor [Unknown]
  - Abdominal discomfort [Unknown]
